FAERS Safety Report 26164977 (Version 1)
Quarter: 2025Q4

REPORT INFORMATION
  Report Type: Spontaneous
  Country: KR (occurrence: KR)
  Receive Date: 20251216
  Receipt Date: 20251216
  Transmission Date: 20260119
  Serious: Yes (Life-Threatening, Other)
  Sender: Kenvue
  Company Number: KR-KENVUE-20251203831

PATIENT
  Age: 54 Year

DRUGS (2)
  1. TYLENOL 8HR [Suspect]
     Active Substance: ACETAMINOPHEN
     Indication: Analgesic therapy
     Dosage: 650 MILLIGRAM, ONCE A DAY, 650MG / 1DAY
     Route: 065
  2. LOXOPROFEN SODIUM DIHYDRATE [Concomitant]
     Active Substance: LOXOPROFEN SODIUM DIHYDRATE
     Indication: Product used for unknown indication
     Dosage: 68.1 MILLIGRAM, ONCE A DAY, 68.1MG / 1DAY
     Route: 065

REACTIONS (4)
  - Syncope [Recovered/Resolved]
  - Dyspnoea [Recovered/Resolved]
  - Rash [Recovered/Resolved]
  - Cold sweat [Recovered/Resolved]
